FAERS Safety Report 9913813 (Version 2)
Quarter: 2014Q1

REPORT INFORMATION
  Report Type: Spontaneous
  Country: CA (occurrence: CA)
  Receive Date: 20140220
  Receipt Date: 20140220
  Transmission Date: 20141002
  Serious: Yes (Hospitalization, Other)
  Sender: FDA-Public Use
  Company Number: CA-BAXTER-2014BAX007353

PATIENT
  Age: 56 Year
  Sex: Female

DRUGS (5)
  1. DIANEAL PD4 SOLUTION WITH 2.5% DEXTROSE AND 2.5 MEQ/L CALCIUM [Suspect]
     Indication: RENAL FAILURE
     Route: 033
     Dates: start: 2012, end: 20140114
  2. EXTRANEAL [Suspect]
     Indication: RENAL FAILURE
     Route: 033
     Dates: start: 2012, end: 20140114
  3. PERINDOPRIL [Suspect]
     Indication: HYPERTENSION
     Route: 048
     Dates: start: 2013
  4. METOPROLOL [Suspect]
     Indication: HYPERTENSION
     Route: 048
  5. METOPROLOL [Suspect]
     Route: 048

REACTIONS (2)
  - Cerebrovascular accident [Recovering/Resolving]
  - Hypotension [Recovering/Resolving]
